FAERS Safety Report 20665438 (Version 1)
Quarter: 2022Q2

REPORT INFORMATION
  Report Type: Report from Study
  Country: US (occurrence: US)
  Receive Date: 20220402
  Receipt Date: 20220402
  Transmission Date: 20220721
  Serious: Yes (Other)
  Sender: FDA-Public Use
  Company Number: US-ABBVIE-22K-163-4341698-00

PATIENT
  Sex: Female

DRUGS (4)
  1. HUMIRA [Suspect]
     Active Substance: ADALIMUMAB
     Indication: Rheumatoid arthritis
     Dosage: CITRATE FREE
     Route: 058
  2. JANSSEN COVID-19 VACCINE [Concomitant]
     Active Substance: AD26.COV2.S
     Indication: COVID-19 immunisation
     Dosage: 1ST DOSE, JOHNSON AND JOHNSON
     Route: 030
     Dates: start: 20210915, end: 20210915
  3. JANSSEN COVID-19 VACCINE [Concomitant]
     Active Substance: AD26.COV2.S
     Dosage: 2ND DOSE, JOHNSON AND JOHNSON
     Route: 030
     Dates: start: 2021, end: 2021
  4. MODERNA COVID-19 VACCINE [Concomitant]
     Active Substance: ELASOMERAN
     Indication: COVID-19 immunisation
     Dosage: 3RD DOSE, BOOSTER DOSE
     Route: 030
     Dates: start: 202202, end: 202202

REACTIONS (4)
  - Rehabilitation therapy [Not Recovered/Not Resolved]
  - Limb injury [Recovering/Resolving]
  - Gastric disorder [Recovering/Resolving]
  - Malaise [Recovering/Resolving]
